FAERS Safety Report 8549919-0 (Version None)
Quarter: 2012Q3

REPORT INFORMATION
  Report Type: 
  Country: None (occurrence: None)
  Receive Date: 20120730
  Receipt Date: 20120726
  Transmission Date: 20120928
  Serious: Yes (Death, Hospitalization)
  Sender: FDA-Public Use
  Company Number: CH-ASTRAZENECA-2012SE53166

PATIENT
  Age: 92 Year
  Sex: Female

DRUGS (2)
  1. SEROQUEL [Suspect]
     Route: 048
     Dates: start: 20120501, end: 20120522
  2. LEXOTANIL [Suspect]
     Route: 048
     Dates: start: 20120501, end: 20120522

REACTIONS (9)
  - RECTAL HAEMORRHAGE [None]
  - DIVERTICULITIS [None]
  - RENAL FAILURE [None]
  - ACUTE GENERALISED EXANTHEMATOUS PUSTULOSIS [None]
  - HAEMOGLOBIN DECREASED [None]
  - DEHYDRATION [None]
  - GASTROINTESTINAL TRACT MUCOSAL PIGMENTATION [None]
  - DERMATITIS EXFOLIATIVE [None]
  - STAPHYLOCOCCAL SEPSIS [None]
